FAERS Safety Report 9144163 (Version 2)
Quarter: 2013Q1

REPORT INFORMATION
  Report Type: Report from Study
  Country: JP (occurrence: JP)
  Receive Date: 20130306
  Receipt Date: 20130321
  Transmission Date: 20140127
  Serious: Yes (Death, Hospitalization)
  Sender: FDA-Public Use
  Company Number: JP-PFIZER INC-2013068829

PATIENT
  Age: 66 Year
  Sex: Male
  Weight: 71 kg

DRUGS (10)
  1. TOFACITINIB CITRATE [Suspect]
     Indication: RHEUMATOID ARTHRITIS
     Dosage: 5 MG, 2X/DAY
     Route: 048
     Dates: start: 20090828, end: 20121205
  2. PROTECADIN [Concomitant]
     Dosage: 10 MG, 2X/DAY
     Route: 048
     Dates: start: 20090414
  3. PREDNISOLONE [Concomitant]
     Dosage: 2 MG, 2X/DAY
     Route: 048
     Dates: start: 20121215
  4. MUCODYNE [Concomitant]
     Dosage: 500 MG, 2X/DAY
     Route: 048
     Dates: start: 20121116
  5. CONIEL [Concomitant]
     Dosage: 4 MG, 1X/DAY
     Route: 048
     Dates: start: 20100604
  6. CARCIOROL [Concomitant]
     Dosage: 0.5 UG, 1X/DAY
     Route: 048
     Dates: start: 20090414
  7. LIPITOR [Concomitant]
     Dosage: 10 MG, 1X/DAY
     Route: 048
     Dates: start: 20100828
  8. SENNOSIDE A+B CALCIUM [Concomitant]
     Dosage: 24 MG, 1X/DAY
     Route: 048
     Dates: start: 20071108
  9. CALBLOCK [Concomitant]
     Dosage: 16 MG, 1X/DAY
     Route: 048
     Dates: start: 20100604
  10. ACTONEL [Concomitant]
     Dosage: 17.5 MG, 1X/DAY
     Dates: start: 20090414

REACTIONS (2)
  - Pulmonary alveolar haemorrhage [Fatal]
  - Acute respiratory distress syndrome [Fatal]
